FAERS Safety Report 9785898 (Version 2)
Quarter: 2014Q1

REPORT INFORMATION
  Report Type: Spontaneous
  Country: US (occurrence: US)
  Receive Date: 20131227
  Receipt Date: 20140114
  Transmission Date: 20141002
  Serious: No
  Sender: FDA-Public Use
  Company Number: US-PFIZER INC-2013369964

PATIENT
  Sex: 0

DRUGS (2)
  1. EFFEXOR XR [Suspect]
     Indication: GENERALISED ANXIETY DISORDER
     Dosage: UNK
  2. EFFEXOR XR [Suspect]
     Indication: PANIC ATTACK

REACTIONS (2)
  - Generalised anxiety disorder [Unknown]
  - Panic disorder [Unknown]
